FAERS Safety Report 8919273 (Version 1)
Quarter: 2012Q4

REPORT INFORMATION
  Report Type: 
  Country: FR (occurrence: FR)
  Receive Date: 20121121
  Receipt Date: 20121121
  Transmission Date: 20130627
  Serious: Yes (Hospitalization)
  Sender: FDA-Public Use
  Company Number: FR-PFIZER INC-2012287471

PATIENT
  Age: 79 Year
  Sex: Male

DRUGS (4)
  1. TAHOR [Suspect]
     Dosage: 10 mg, once daily
     Route: 048
     Dates: end: 20110725
  2. PRADAXA [Suspect]
     Indication: HIP PROSTHESIS USER
     Dosage: 110 mg, 1 dose-from twice daily
     Route: 048
     Dates: start: 20110624, end: 20110725
  3. AVODART [Concomitant]
     Dosage: 1 DF,  once daily
     Route: 048
     Dates: end: 20110725
  4. ALFUZOSIN [Concomitant]
     Dosage: 1 DF,once daily
     Route: 048
     Dates: end: 20110725

REACTIONS (1)
  - Lung disorder [Recovered/Resolved]
